FAERS Safety Report 21403818 (Version 2)
Quarter: 2022Q4

REPORT INFORMATION
  Report Type: Spontaneous
  Country: US (occurrence: US)
  Receive Date: 20221003
  Receipt Date: 20221027
  Transmission Date: 20230113
  Serious: Yes (Death, Hospitalization, Other)
  Sender: FDA-Public Use
  Company Number: US-INCYTE CORPORATION-2022IN009437

PATIENT

DRUGS (1)
  1. JAKAFI [Suspect]
     Active Substance: RUXOLITINIB
     Indication: Myelofibrosis
     Dosage: 15 MILLIGRAM, BID
     Route: 048
     Dates: start: 202106

REACTIONS (5)
  - Death [Fatal]
  - Pneumonia [Unknown]
  - Rectal haemorrhage [Recovered/Resolved]
  - Rectal obstruction [Unknown]
  - Anorectal infection [Unknown]

NARRATIVE: CASE EVENT DATE: 20220925
